FAERS Safety Report 4431440-2 (Version None)
Quarter: 2004Q3

REPORT INFORMATION
  Report Type: 
  Country: None (occurrence: None)
  Receive Date: 20040824
  Receipt Date: 20040813
  Transmission Date: 20050211
  Serious: Yes (Death, Hospitalization)
  Sender: FDA-Public Use
  Company Number: FR-GLAXOSMITHKLINE-B0343044A

PATIENT
  Age: 93 Year
  Sex: Female

DRUGS (6)
  1. AUGMENTIN '125' [Suspect]
     Route: 065
     Dates: start: 20040711, end: 20040711
  2. ISKEDYL [Concomitant]
  3. LOXEN LP 50 MG [Concomitant]
     Route: 048
  4. PLAVIX [Concomitant]
     Route: 048
  5. HEMIGOXINE NATIVELLE [Concomitant]
     Route: 048
  6. ROCEPHIN [Concomitant]
     Dates: start: 20040712

REACTIONS (2)
  - LUNG DISORDER [None]
  - RASH [None]
